FAERS Safety Report 8492521-X (Version None)
Quarter: 2012Q3

REPORT INFORMATION
  Report Type: 
  Country: None (occurrence: None)
  Receive Date: 20120706
  Receipt Date: 20120629
  Transmission Date: 20120928
  Serious: Yes (Other)
  Sender: FDA-Public Use
  Company Number: CA-ABBOTT-12P-028-0940632-00

PATIENT
  Sex: Male
  Weight: 70.37 kg

DRUGS (3)
  1. HUMIRA [Suspect]
     Indication: CROHN'S DISEASE
     Dosage: LOADING DOSE
     Route: 058
     Dates: start: 20120514, end: 20120514
  2. HUMIRA [Suspect]
     Dates: end: 20120609
  3. HUMIRA [Suspect]
     Dosage: LOADING DOSE
     Route: 058
     Dates: start: 20120528, end: 20120528

REACTIONS (5)
  - INTESTINAL DILATATION [None]
  - GASTROINTESTINAL DISORDER [None]
  - HAEMOGLOBIN ABNORMAL [None]
  - GASTROINTESTINAL INFLAMMATION [None]
  - SMALL INTESTINAL HAEMORRHAGE [None]
